FAERS Safety Report 6961640-9 (Version None)
Quarter: 2010Q3

REPORT INFORMATION
  Report Type: 
  Country: None (occurrence: None)
  Receive Date: 20100901
  Receipt Date: 20100823
  Transmission Date: 20110219
  Serious: Yes (Disabling, Other)
  Sender: FDA-Public Use
  Company Number: US-GILEAD-2010-0031263

PATIENT
  Age: 43 Year
  Sex: Male

DRUGS (1)
  1. TRUVADA [Suspect]
     Indication: HEPATITIS

REACTIONS (2)
  - OSTEOPOROSIS [None]
  - PAIN [None]
